FAERS Safety Report 11276250 (Version 1)
Quarter: 2015Q3

REPORT INFORMATION
  Report Type: Spontaneous
  Country: PT (occurrence: PT)
  Receive Date: 20150716
  Receipt Date: 20150716
  Transmission Date: 20151125
  Serious: Yes (Hospitalization)
  Sender: FDA-Public Use
  Company Number: PT-ASTRAZENECA-2015SE66932

PATIENT
  Age: 807 Month
  Sex: Male
  Weight: 88 kg

DRUGS (1)
  1. PLENDIL [Suspect]
     Active Substance: FELODIPINE
     Indication: HYPERTENSION
     Route: 048
     Dates: start: 200803, end: 2008

REACTIONS (4)
  - Skin exfoliation [Recovered/Resolved]
  - Pruritus [Recovered/Resolved]
  - Erythema [Recovered/Resolved]
  - Photodermatosis [Recovered/Resolved]

NARRATIVE: CASE EVENT DATE: 200803
